FAERS Safety Report 16885063 (Version 1)
Quarter: 2019Q4

REPORT INFORMATION
  Report Type: Spontaneous
  Country: US (occurrence: US)
  Receive Date: 20190809
  Receipt Date: 20190809
  Transmission Date: 20200122
  Serious: No
  Sender: FDA-Public Use
  Company Number: None

PATIENT
  Age: 68 Year
  Sex: Female
  Weight: 60.33 kg

DRUGS (1)
  1. VERZENIO [Suspect]
     Active Substance: ABEMACICLIB
     Dates: start: 20190103

REACTIONS (4)
  - Somnolence [None]
  - Fatigue [None]
  - Pyrexia [None]
  - Hepatic function abnormal [None]

NARRATIVE: CASE EVENT DATE: 20190807
